FAERS Safety Report 7816748-2 (Version None)
Quarter: 2011Q4

REPORT INFORMATION
  Report Type: 
  Country: None (occurrence: None)
  Receive Date: 20111017
  Receipt Date: 20111011
  Transmission Date: 20120403
  Serious: Yes (Hospitalization, Other)
  Sender: FDA-Public Use
  Company Number: AU-SHIRE-ALL1-2011-01894

PATIENT
  Sex: Female

DRUGS (3)
  1. MESALAMINE [Suspect]
     Indication: DIARRHOEA HAEMORRHAGIC
     Dosage: 1.2 G, 1X/DAY:QD
     Route: 048
  2. MESALAMINE [Suspect]
     Indication: COLITIS ULCERATIVE
     Dosage: 4.8 G, 1X/DAY:QD
     Route: 048
  3. MESALAMINE [Suspect]
     Dosage: 2.4 G, 1X/DAY:QD
     Route: 048
     Dates: start: 20110612

REACTIONS (4)
  - DIARRHOEA HAEMORRHAGIC [None]
  - PAIN [None]
  - MUSCLE SPASMS [None]
  - CONDITION AGGRAVATED [None]
